FAERS Safety Report 12913955 (Version 1)
Quarter: 2016Q4

REPORT INFORMATION
  Report Type: Spontaneous
  Country: US (occurrence: US)
  Receive Date: 20161104
  Receipt Date: 20161104
  Transmission Date: 20170207
  Serious: No
  Sender: FDA-Public Use
  Company Number: US-TEIKOKU PHARMA USA-TPU2016-00733

PATIENT
  Age: 64 Year
  Sex: Male
  Weight: 77.18 kg

DRUGS (1)
  1. LIDOCAINE PATCH [Suspect]
     Active Substance: LIDOCAINE
     Indication: ARTHRITIS
     Dosage: APPLY 1 PATCH ON SKIN EVERY 12 HOURS ON AND OFF FOR 12 HOURS
     Route: 061
     Dates: start: 20161019, end: 20161027

REACTIONS (6)
  - Application site pain [Not Recovered/Not Resolved]
  - Application site burn [Not Recovered/Not Resolved]
  - Application site erythema [Not Recovered/Not Resolved]
  - Application site bruise [Not Recovered/Not Resolved]
  - Application site bruise [Not Recovered/Not Resolved]
  - Application site hypoaesthesia [Not Recovered/Not Resolved]

NARRATIVE: CASE EVENT DATE: 20161019
